FAERS Safety Report 5934875-1 (Version None)
Quarter: 2008Q4

REPORT INFORMATION
  Report Type: 
  Country: None (occurrence: None)
  Receive Date: 20081029
  Receipt Date: 20081013
  Transmission Date: 20090506
  Serious: Yes (Other)
  Sender: FDA-Public Use
  Company Number: IT-GENENTECH-270534

PATIENT

DRUGS (2)
  1. BEVACIZUMAB [Suspect]
     Indication: RECTAL CANCER
  2. CAPECITABINE [Suspect]
     Indication: RECTAL CANCER

REACTIONS (1)
  - HYPOKALAEMIA [None]
